FAERS Safety Report 12483868 (Version 7)
Quarter: 2016Q4

REPORT INFORMATION
  Report Type: Spontaneous
  Country: JP (occurrence: JP)
  Receive Date: 20160621
  Receipt Date: 20161006
  Transmission Date: 20170207
  Serious: Yes (Life-Threatening, Hospitalization)
  Sender: FDA-Public Use
  Company Number: JP-ROCHE-1779373

PATIENT
  Age: 76 Year
  Sex: Female

DRUGS (8)
  1. SINGULAIR [Concomitant]
     Active Substance: MONTELUKAST SODIUM
     Indication: ASTHMA
     Dosage: 10 MG, QD
     Route: 048
     Dates: start: 20120812
  2. PARIET [Concomitant]
     Active Substance: RABEPRAZOLE SODIUM
     Indication: GASTROOESOPHAGEAL REFLUX DISEASE
     Dosage: 10 MG, QD
     Route: 048
     Dates: start: 20130119
  3. SOLIFENACIN SUCCINATE. [Concomitant]
     Active Substance: SOLIFENACIN SUCCINATE
  4. XOLAIR [Suspect]
     Active Substance: OMALIZUMAB
     Indication: ASTHMA
     Dosage: 525 MG, BIW
     Route: 058
     Dates: start: 20130213, end: 20160519
  5. EPINASTINE [Concomitant]
     Active Substance: EPINASTINE
     Indication: DERMATITIS ALLERGIC
     Dosage: 20 MG, QD
     Route: 048
     Dates: start: 20120812
  6. LIVALO [Concomitant]
     Active Substance: PITAVASTATIN CALCIUM
     Indication: DYSLIPIDAEMIA
     Dosage: 2 MG, QD
     Route: 048
     Dates: start: 20120812
  7. ARICEPT [Concomitant]
     Active Substance: DONEPEZIL HYDROCHLORIDE
     Indication: DEMENTIA ALZHEIMER^S TYPE
     Dosage: 10 MG, QD
     Route: 048
     Dates: start: 20120812
  8. THEOPHYLLINE [Concomitant]
     Active Substance: THEOPHYLLINE ANHYDROUS

REACTIONS (19)
  - Gastric mucosal lesion [Unknown]
  - Uterine atrophy [Not Recovered/Not Resolved]
  - Eosinophil percentage increased [Recovered/Resolved]
  - Liver disorder [Not Recovered/Not Resolved]
  - Monocyte percentage increased [Not Recovered/Not Resolved]
  - Abdominal pain upper [Unknown]
  - Lymphocyte percentage decreased [Unknown]
  - Respiratory disorder [Not Recovered/Not Resolved]
  - Douglas^ pouch mass [Not Recovered/Not Resolved]
  - Malignant peritoneal neoplasm [Not Recovered/Not Resolved]
  - Hypoalbuminaemia [Not Recovered/Not Resolved]
  - Pleural effusion [Unknown]
  - Oxygen saturation decreased [Not Recovered/Not Resolved]
  - Ascites [Unknown]
  - Neutrophil percentage increased [Unknown]
  - Bronchitis [Recovering/Resolving]
  - Heart rate increased [Not Recovered/Not Resolved]
  - Calcinosis [Unknown]
  - C-reactive protein increased [Unknown]

NARRATIVE: CASE EVENT DATE: 20140108
